FAERS Safety Report 7272759-X (Version None)
Quarter: 2011Q1

REPORT INFORMATION
  Report Type: 
  Country: None (occurrence: None)
  Receive Date: 20110203
  Receipt Date: 20110119
  Transmission Date: 20110831
  Serious: Yes (Hospitalization)
  Sender: FDA-Public Use
  Company Number: IT-CELGENEUS-083-C5013-10100698

PATIENT
  Sex: Female
  Weight: 74 kg

DRUGS (17)
  1. SINTROM [Concomitant]
     Indication: PROPHYLAXIS
  2. EUTIROX [Concomitant]
     Route: 048
     Dates: start: 20100401, end: 20101013
  3. DEXAMETHASONE [Suspect]
     Route: 065
     Dates: start: 20100923
  4. NEXIUM [Concomitant]
     Route: 048
     Dates: start: 20101014
  5. EUTIROX [Concomitant]
     Route: 048
     Dates: start: 20101014
  6. NEXIUM [Concomitant]
     Indication: PROPHYLAXIS
     Route: 048
     Dates: start: 20100729, end: 20100930
  7. DIURESIX [Concomitant]
     Indication: HYPERTENSION
     Route: 048
     Dates: start: 20100909
  8. BACTRIM [Concomitant]
     Indication: ANTIBIOTIC PROPHYLAXIS
     Route: 048
     Dates: start: 20100729
  9. SINTROM [Concomitant]
     Indication: ATRIAL FIBRILLATION
     Route: 048
     Dates: start: 20070101
  10. DEXAMETHASONE [Suspect]
     Route: 065
     Dates: start: 20101102
  11. PROVISACOR [Concomitant]
     Route: 048
     Dates: start: 20090601, end: 20101001
  12. CC-5013 [Suspect]
     Indication: MULTIPLE MYELOMA
     Route: 048
     Dates: start: 20100729
  13. CC-5013 [Suspect]
     Route: 048
     Dates: start: 20100923
  14. CC-5013 [Suspect]
     Route: 048
     Dates: start: 20101102
  15. DEXAMETHASONE [Suspect]
     Indication: MULTIPLE MYELOMA
     Route: 065
     Dates: start: 20100729
  16. BIFRIZIDE [Concomitant]
     Indication: HYPERTENSION
     Route: 048
     Dates: start: 20090101
  17. CARDURA [Concomitant]
     Indication: HYPERTENSION
     Route: 048
     Dates: start: 20090101, end: 20100908

REACTIONS (2)
  - BRONCHITIS [None]
  - ASTHMA [None]
